FAERS Safety Report 8432524-4 (Version None)
Quarter: 2012Q2

REPORT INFORMATION
  Report Type: 
  Country: None (occurrence: None)
  Receive Date: 20120613
  Receipt Date: 20120611
  Transmission Date: 20120825
  Serious: Yes (Other)
  Sender: FDA-Public Use
  Company Number: PHHY2011US46954

PATIENT
  Sex: Female

DRUGS (1)
  1. DIOVAN [Suspect]
     Dosage: 240 MG (160 MG IN THE MORNING AND 60 MG IN THE AFTERNOON), DAILY
     Route: 048

REACTIONS (2)
  - DIABETES MELLITUS [None]
  - LIVER TRANSPLANT [None]
